FAERS Safety Report 16928350 (Version 1)
Quarter: 2019Q4

REPORT INFORMATION
  Report Type: Spontaneous
  Country: US (occurrence: US)
  Receive Date: 20191017
  Receipt Date: 20191017
  Transmission Date: 20200122
  Serious: No
  Sender: FDA-Public Use
  Company Number: US-ALLERGAN-1900409US

PATIENT
  Age: 73 Year
  Sex: Male

DRUGS (2)
  1. RECTIV [Suspect]
     Active Substance: NITROGLYCERIN
     Indication: ANAL STENOSIS
     Dosage: 1 INCH TWICE DAILY
     Route: 054
     Dates: start: 201901
  2. STOOL SOFTNER (UNSPECIFIED) [Concomitant]
     Dosage: UNK

REACTIONS (3)
  - Drug ineffective for unapproved indication [Unknown]
  - Off label use [Unknown]
  - Condition aggravated [Unknown]

NARRATIVE: CASE EVENT DATE: 2019
